FAERS Safety Report 11716679 (Version 3)
Quarter: 2015Q4

REPORT INFORMATION
  Report Type: Spontaneous
  Country: SI (occurrence: SI)
  Receive Date: 20151109
  Receipt Date: 20151224
  Transmission Date: 20160304
  Serious: Yes (Life-Threatening, Other)
  Sender: FDA-Public Use
  Company Number: SI-BRISTOL-MYERS SQUIBB COMPANY-BMS-2015-072534

PATIENT
  Age: 74 Year
  Sex: Female

DRUGS (4)
  1. LORISTA H [Concomitant]
     Indication: HYPERTENSION
     Dosage: 1 DF, UNK
     Route: 065
  2. AMLOPIN                            /00972401/ [Concomitant]
     Indication: PRODUCT USED FOR UNKNOWN INDICATION
     Dosage: 5 MG, UNK
     Route: 065
  3. ATORIS [Concomitant]
     Active Substance: ATORVASTATIN CALCIUM
     Indication: DYSLIPIDAEMIA
     Dosage: 10 MG, UNK
     Route: 065
  4. ELIQUIS [Suspect]
     Active Substance: APIXABAN
     Indication: CEREBROVASCULAR ACCIDENT PROPHYLAXIS
     Dosage: 5 MG, BID
     Route: 048
     Dates: end: 20150728

REACTIONS (2)
  - Amyloidosis [Unknown]
  - Haemorrhage intracranial [Recovering/Resolving]
